FAERS Safety Report 23223578 (Version 1)
Quarter: 2023Q4

REPORT INFORMATION
  Report Type: Spontaneous
  Country: US (occurrence: US)
  Receive Date: 20231124
  Receipt Date: 20231124
  Transmission Date: 20240110
  Serious: Yes (Other)
  Sender: FDA-Public Use
  Company Number: US-STRIDES ARCOLAB LIMITED-2023SP017499

PATIENT
  Age: 19 Year
  Sex: Female
  Weight: 114 kg

DRUGS (2)
  1. MEGESTROL ACETATE [Suspect]
     Active Substance: MEGESTROL ACETATE
     Indication: Decreased appetite
     Dosage: 200 MILLIGRAM PER DAY
     Route: 065
  2. MEGESTROL ACETATE [Suspect]
     Active Substance: MEGESTROL ACETATE
     Indication: Weight decreased

REACTIONS (6)
  - Secondary hypogonadism [Recovered/Resolved]
  - Cushing^s syndrome [Unknown]
  - Adrenal insufficiency [Recovered/Resolved]
  - Diabetes mellitus [Recovered/Resolved]
  - Hypoglycaemia [Unknown]
  - Off label use [Unknown]
